FAERS Safety Report 6636189-3 (Version None)
Quarter: 2010Q1

REPORT INFORMATION
  Report Type: 
  Country: None (occurrence: None)
  Receive Date: 20100316
  Receipt Date: 20100304
  Transmission Date: 20100710
  Serious: Yes (Hospitalization, Disabling, Other)
  Sender: FDA-Public Use
  Company Number: US-ELI_LILLY_AND_COMPANY-US200911005501

PATIENT
  Sex: Male
  Weight: 109.75 kg

DRUGS (3)
  1. ZYPREXA [Suspect]
     Dosage: 20 MG, DAILY (1/D)
     Dates: start: 19950601, end: 20060101
  2. ARIPIPRAZOLE [Concomitant]
     Dates: start: 20060401
  3. LITHIUM CARBONATE [Concomitant]
     Dates: start: 19950601

REACTIONS (7)
  - DIABETES MELLITUS [None]
  - HEPATIC STEATOSIS [None]
  - HYPERGLYCAEMIC HYPEROSMOLAR NONKETOTIC SYNDROME [None]
  - LACTIC ACIDOSIS [None]
  - LOWER GASTROINTESTINAL HAEMORRHAGE [None]
  - METABOLIC DISORDER [None]
  - WEIGHT INCREASED [None]
